FAERS Safety Report 10224786 (Version 5)
Quarter: 2014Q4

REPORT INFORMATION
  Report Type: Spontaneous
  Country: US (occurrence: US)
  Receive Date: 20140609
  Receipt Date: 20141023
  Transmission Date: 20150528
  Serious: Yes (Hospitalization)
  Sender: FDA-Public Use
  Company Number: US-ASTELLAS-2014US006488

PATIENT
  Sex: Male

DRUGS (3)
  1. TARCEVA [Suspect]
     Active Substance: ERLOTINIB HYDROCHLORIDE
     Route: 048
     Dates: start: 20131221
  2. CIPRO                              /00697201/ [Concomitant]
     Active Substance: CIPROFLOXACIN
     Indication: PRODUCT USED FOR UNKNOWN INDICATION
     Dosage: UNK UNK, UNKNOWN FREQ.
     Route: 065
  3. TARCEVA [Suspect]
     Active Substance: ERLOTINIB HYDROCHLORIDE
     Indication: LUNG NEOPLASM MALIGNANT
     Route: 048
     Dates: start: 20131224

REACTIONS (15)
  - Dry skin [Unknown]
  - Alopecia [Unknown]
  - Ulcer [Unknown]
  - Eating disorder [Unknown]
  - Asthenia [Unknown]
  - Hypoaesthesia [Unknown]
  - Skin ulcer [Unknown]
  - Diarrhoea [Unknown]
  - Weight decreased [Unknown]
  - Fatigue [Unknown]
  - Decreased appetite [Unknown]
  - Scab [Unknown]
  - Myalgia [Unknown]
  - Loss of consciousness [Unknown]
  - Rash [Unknown]
